FAERS Safety Report 6991440-5 (Version None)
Quarter: 2010Q3

REPORT INFORMATION
  Report Type: 
  Country: None (occurrence: None)
  Receive Date: 20100916
  Receipt Date: 20090821
  Transmission Date: 20110219
  Serious: No
  Sender: FDA-Public Use
  Company Number: US-WYE-H10699409

PATIENT
  Sex: Male
  Weight: 74.91 kg

DRUGS (2)
  1. PRISTIQ [Suspect]
     Indication: DEPRESSION
     Route: 048
     Dates: start: 20090820
  2. TESTOSTERONE [Concomitant]

REACTIONS (1)
  - TREMOR [None]
